FAERS Safety Report 6388905-6 (Version None)
Quarter: 2009Q4

REPORT INFORMATION
  Report Type: 
  Country: None (occurrence: None)
  Receive Date: 20091001
  Receipt Date: 20090918
  Transmission Date: 20100525
  Serious: Yes (Death, Other)
  Sender: FDA-Public Use
  Company Number: CLOF-1000325

PATIENT
  Age: 65 Year

DRUGS (11)
  1. EVOLTRA (CLOFARABINE) SOLUTION FOR INFUSION [Suspect]
     Indication: ACUTE MYELOID LEUKAEMIA
     Dosage: 36 MG, QDX5, INTRAVENOUS
     Route: 042
     Dates: start: 20080929, end: 20081003
  2. DAUNORUBICIN HCL [Suspect]
     Indication: ACUTE MYELOID LEUKAEMIA
     Dosage: 90 MG, TIW
     Dates: start: 20080929, end: 20080929
  3. DAUNORUBICIN HCL [Suspect]
     Indication: ACUTE MYELOID LEUKAEMIA
     Dosage: 90 MG, TIW
     Dates: start: 20081001, end: 20081001
  4. DAUNORUBICIN HCL [Suspect]
     Indication: ACUTE MYELOID LEUKAEMIA
     Dosage: 90 MG, TIW
     Dates: start: 20081003, end: 20081003
  5. ALLOPURINOL [Concomitant]
  6. ACYCLOVIR [Concomitant]
  7. LANSOPRAZOLE [Concomitant]
  8. AMIKACIN [Concomitant]
  9. CO-AMILOFRUSE (AMILORIDE HYDROCHLORIDE, FUROSEMIDE) [Concomitant]
  10. ITRACONAZOLE [Concomitant]
  11. AMILORIDE (AMILORIDE) [Concomitant]

REACTIONS (4)
  - CEREBROVASCULAR ACCIDENT [None]
  - MYOCARDIAL INFARCTION [None]
  - PANCYTOPENIA [None]
  - SUDDEN DEATH [None]
